FAERS Safety Report 4442435-7 (Version None)
Quarter: 2004Q3

REPORT INFORMATION
  Report Type: 
  Country: None (occurrence: None)
  Receive Date: 20040903
  Receipt Date: 20040706
  Transmission Date: 20050211
  Serious: Yes (Other)
  Sender: FDA-Public Use
  Company Number: 2004UW13897

PATIENT
  Age: 73 Year
  Sex: Female
  Weight: 90.7194 kg

DRUGS (8)
  1. CRESTOR [Suspect]
     Indication: HYPERCHOLESTEROLAEMIA
     Dosage: 10 MG QD PO/A FEW WEEKS
     Route: 048
  2. INSULIN [Concomitant]
  3. GLUCOPHAGE [Concomitant]
  4. CAPTOPRIL [Concomitant]
  5. LASIX [Concomitant]
  6. BEXTRA [Concomitant]
  7. COUMADIN [Concomitant]
  8. COREG [Concomitant]

REACTIONS (3)
  - ARTHRALGIA [None]
  - ATRIAL FIBRILLATION [None]
  - MYALGIA [None]
